FAERS Safety Report 12446515 (Version 1)
Quarter: 2016Q2

REPORT INFORMATION
  Report Type: Spontaneous
  Country: IT (occurrence: IT)
  Receive Date: 20160608
  Receipt Date: 20160608
  Transmission Date: 20160815
  Serious: Yes (Other)
  Sender: FDA-Public Use
  Company Number: IT-AUROBINDO-AUR-APL-2016-07364

PATIENT
  Age: 19 Year
  Sex: Male

DRUGS (1)
  1. CIPROFLOXACIN. [Suspect]
     Active Substance: CIPROFLOXACIN
     Indication: ORCHITIS
     Dosage: 1000 MG, DAILY
     Route: 048
     Dates: start: 20160517, end: 20160522

REACTIONS (2)
  - Asthenia [Unknown]
  - Idiosyncratic drug reaction [Unknown]

NARRATIVE: CASE EVENT DATE: 20160519
